FAERS Safety Report 4873035-2 (Version None)
Quarter: 2005Q4

REPORT INFORMATION
  Report Type: 
  Country: None (occurrence: None)
  Receive Date: 20051201
  Receipt Date: 20050712
  Transmission Date: 20060501
  Serious: No
  Sender: FDA-Public Use
  Company Number: 2005PV000377

PATIENT
  Age: 53 Year
  Sex: Female
  Weight: 176.9028 kg

DRUGS (8)
  1. BYETTA [Suspect]
     Indication: DIABETES MELLITUS NON-INSULIN-DEPENDENT
     Dosage: SEE IMAGE, SC
     Route: 058
     Dates: start: 20050601, end: 20050710
  2. BYETTA [Suspect]
     Indication: DIABETES MELLITUS NON-INSULIN-DEPENDENT
     Dosage: SEE IMAGE, SC
     Route: 058
     Dates: start: 20050711
  3. DIOVAN HCT [Concomitant]
  4. AVANDAMET [Concomitant]
  5. SYNTHROID [Concomitant]
  6. PROSCAR [Concomitant]
  7. PRAVACHOL [Concomitant]
  8. TRICOR [Concomitant]

REACTIONS (3)
  - THERAPEUTIC RESPONSE UNEXPECTED [None]
  - VOMITING [None]
  - WEIGHT DECREASED [None]
